FAERS Safety Report 14876864 (Version 1)
Quarter: 2018Q2

REPORT INFORMATION
  Report Type: Spontaneous
  Country: US (occurrence: US)
  Receive Date: 20180510
  Receipt Date: 20180510
  Transmission Date: 20180711
  Serious: No
  Sender: FDA-Public Use
  Company Number: US-009507513-1805USA003580

PATIENT
  Age: 79 Year
  Sex: Male

DRUGS (6)
  1. BALSARTAN [Concomitant]
  2. CARVEDILOL. [Concomitant]
     Active Substance: CARVEDILOL
  3. JANUMET [Suspect]
     Active Substance: METFORMIN HYDROCHLORIDE\SITAGLIPTIN PHOSPHATE
     Indication: DIABETES MELLITUS
     Dosage: TWO 50/1000 TABLET/ DAILY
     Route: 048
     Dates: start: 20180501
  4. GLIPIZIDE. [Concomitant]
     Active Substance: GLIPIZIDE
  5. ATORVASTATIN [Concomitant]
     Active Substance: ATORVASTATIN
  6. OMEGA-3 MARINE TRIGLYCERIDES [Concomitant]
     Active Substance: FISH OIL

REACTIONS (1)
  - Dysphagia [Not Recovered/Not Resolved]

NARRATIVE: CASE EVENT DATE: 20180501
